FAERS Safety Report 4883489-3 (Version None)
Quarter: 2006Q1

REPORT INFORMATION
  Report Type: 
  Country: None (occurrence: None)
  Receive Date: 20060118
  Receipt Date: 20050218
  Transmission Date: 20060701
  Serious: Yes (Hospitalization)
  Sender: FDA-Public Use
  Company Number: US-MERCK-0502USA02812

PATIENT
  Age: 72 Year
  Sex: Male
  Weight: 109 kg

DRUGS (10)
  1. VIOXX [Suspect]
     Indication: ARTHRITIS
     Route: 048
     Dates: start: 20040201, end: 20040601
  2. PLAVIX [Concomitant]
     Route: 065
  3. METOPROLOL [Concomitant]
     Route: 065
  4. LORATADINE [Concomitant]
     Route: 065
  5. [THERAPY UNSPECIFIED] [Concomitant]
     Route: 065
  6. LESCOL [Concomitant]
     Route: 065
  7. RANITIDINE [Concomitant]
     Route: 065
  8. HYDROCHLOROTHIAZIDE [Concomitant]
     Route: 065
  9. VASOTEC [Concomitant]
     Route: 065
  10. VIOXX [Concomitant]
     Route: 048
     Dates: start: 20040201, end: 20040601

REACTIONS (3)
  - CARDIAC DISORDER [None]
  - CHEST PAIN [None]
  - INJURY [None]
